FAERS Safety Report 5752480-7 (Version None)
Quarter: 2008Q2

REPORT INFORMATION
  Report Type: 
  Country: None (occurrence: None)
  Receive Date: 20080527
  Receipt Date: 20080527
  Transmission Date: 20081010
  Serious: Yes (Hospitalization)
  Sender: FDA-Public Use
  Company Number: None

PATIENT
  Age: 61 Year
  Sex: Male

DRUGS (2)
  1. NOVOSEVEN [Suspect]
     Indication: COAGULOPATHY
     Dosage: 8400 MCG ONCE IV BOLUS ONE DOSE
     Route: 040
  2. NOVOSEVEN [Suspect]
     Indication: TRAUMATIC HAEMORRHAGE
     Dosage: 8400 MCG ONCE IV BOLUS ONE DOSE
     Route: 040

REACTIONS (1)
  - DEEP VEIN THROMBOSIS [None]
